FAERS Safety Report 4928224-5 (Version None)
Quarter: 2006Q1

REPORT INFORMATION
  Report Type: 
  Country: None (occurrence: None)
  Receive Date: 20060223
  Receipt Date: 20060131
  Transmission Date: 20060701
  Serious: Yes (Hospitalization)
  Sender: FDA-Public Use
  Company Number: FR200602000317

PATIENT
  Age: 85 Year
  Sex: Female

DRUGS (5)
  1. FORTEO [Suspect]
     Indication: OSTEOPOROSIS
     Dosage: 20 UG DAILY (1/D), SUBCUTANEOUS
     Route: 058
     Dates: start: 20041211, end: 20051125
  2. FORTEO [Concomitant]
  3. ALLOPURINOL [Concomitant]
  4. VASTAREL (TRIMETAZIDINE HYDROCHLORIDE) [Concomitant]
  5. CALCIVIT D (CALCIUM CARBONATE, COLECALCIFEROL) [Concomitant]

REACTIONS (1)
  - CHRONIC MYELOID LEUKAEMIA [None]
